FAERS Safety Report 5359482-3 (Version None)
Quarter: 2007Q2

REPORT INFORMATION
  Report Type: 
  Country: None (occurrence: None)
  Receive Date: 20070615
  Receipt Date: 20070604
  Transmission Date: 20071010
  Serious: Yes (Other)
  Sender: FDA-Public Use
  Company Number: US-PFIZER INC-2007046197

PATIENT
  Sex: Male
  Weight: 84.4 kg

DRUGS (5)
  1. LIPITOR [Suspect]
     Indication: BLOOD CHOLESTEROL INCREASED
  2. LISINOPRIL [Concomitant]
  3. PRILOSEC [Concomitant]
  4. VALIUM [Concomitant]
  5. TAMSULOSIN HCL [Concomitant]

REACTIONS (4)
  - ALANINE AMINOTRANSFERASE INCREASED [None]
  - BLOOD TRIGLYCERIDES INCREASED [None]
  - HEPATIC FUNCTION ABNORMAL [None]
  - TOTAL CHOLESTEROL/HDL RATIO [None]
